FAERS Safety Report 21889895 (Version 6)
Quarter: 2023Q1

REPORT INFORMATION
  Report Type: Report from Study
  Country: KR (occurrence: None)
  Receive Date: 20230120
  Receipt Date: 20230228
  Transmission Date: 20230418
  Serious: Yes (Hospitalization)
  Sender: FDA-Public Use
  Company Number: KR-Eisai Medical Research-EC-2023-131499

PATIENT
  Age: 60 Year
  Sex: Male
  Weight: 62.1 kg

DRUGS (8)
  1. LENVATINIB [Suspect]
     Active Substance: LENVATINIB
     Indication: Renal cell carcinoma
     Route: 048
     Dates: start: 20221019, end: 20221216
  2. BELZUTIFAN [Suspect]
     Active Substance: BELZUTIFAN
     Indication: Renal cell carcinoma
     Route: 048
     Dates: start: 20221019, end: 20230102
  3. BELZUTIFAN [Suspect]
     Active Substance: BELZUTIFAN
     Route: 048
     Dates: start: 20230103, end: 20230103
  4. LEVOTENSION [Concomitant]
     Dates: start: 201701
  5. CRESTOR [Concomitant]
     Active Substance: ROSUVASTATIN CALCIUM
     Dates: start: 201701
  6. CETAMADOL [Concomitant]
     Dates: start: 20220513
  7. NAPROXEN [Concomitant]
     Active Substance: NAPROXEN
     Dates: start: 20221102
  8. LACTICARE HC [Concomitant]
     Dates: start: 20221130

REACTIONS (1)
  - Myocarditis [Recovering/Resolving]

NARRATIVE: CASE EVENT DATE: 20221223
